FAERS Safety Report 8036177-9 (Version None)
Quarter: 2012Q1

REPORT INFORMATION
  Report Type: 
  Country: None (occurrence: None)
  Receive Date: 20120106
  Receipt Date: 20111228
  Transmission Date: 20120608
  Serious: Yes (Other)
  Sender: FDA-Public Use
  Company Number: 2012MA000060

PATIENT
  Age: 48 Year
  Sex: Male

DRUGS (6)
  1. RANITIDINE [Concomitant]
  2. TEGRETOL [Concomitant]
  3. ACETAMINOPHEN [Concomitant]
  4. GABAPENTIN [Suspect]
     Indication: TREMOR
     Dosage: 1800 MG; QD; PO
     Route: 048
     Dates: start: 20110913, end: 20111130
  5. EPILM CHRONO [Concomitant]
  6. SULFASALAZINE [Concomitant]

REACTIONS (1)
  - NEUTROPENIA [None]
